FAERS Safety Report 13199745 (Version 1)
Quarter: 2017Q1

REPORT INFORMATION
  Report Type: Spontaneous
  Country: CA (occurrence: CA)
  Receive Date: 20170208
  Receipt Date: 20170208
  Transmission Date: 20170428
  Serious: Yes (Other)
  Sender: FDA-Public Use
  Company Number: CA-SA-2017SA018399

PATIENT
  Age: 62 Year
  Sex: Male

DRUGS (4)
  1. CLIKSTAR [Concomitant]
     Active Substance: CLIKSTAR
     Indication: TYPE 2 DIABETES MELLITUS
  2. NPH INSULIN [Concomitant]
     Active Substance: INSULIN BEEF
  3. LANTUS [Suspect]
     Active Substance: INSULIN GLARGINE
     Indication: TYPE 2 DIABETES MELLITUS
     Route: 065
  4. NOVORAPID [Concomitant]
     Active Substance: INSULIN ASPART

REACTIONS (1)
  - Seizure [Recovered/Resolved]
